FAERS Safety Report 5783151-9 (Version None)
Quarter: 2008Q2

REPORT INFORMATION
  Report Type: 
  Country: None (occurrence: None)
  Receive Date: 20080619
  Receipt Date: 20080620
  Transmission Date: 20081010
  Serious: Yes (Hospitalization, Other)
  Sender: FDA-Public Use
  Company Number: 2008SP011339

PATIENT
  Age: 3 Year
  Sex: Female
  Weight: 12 kg

DRUGS (6)
  1. NOXAFIL [Suspect]
     Indication: DRUG USE FOR UNKNOWN INDICATION
     Dosage: 100 MG; BID
     Dates: start: 20080415
  2. VINCRISTINE [Concomitant]
  3. CAPPIZI MTX [Concomitant]
  4. L-ASP [Concomitant]
  5. LEUCOVORIN CALCIUM [Concomitant]
  6. AMBISOME [Concomitant]

REACTIONS (1)
  - ILEUS PARALYTIC [None]
